FAERS Safety Report 9696912 (Version 2)
Quarter: 2013Q4

REPORT INFORMATION
  Report Type: Spontaneous
  Country: US (occurrence: US)
  Receive Date: 20131119
  Receipt Date: 20131119
  Transmission Date: 20140711
  Serious: No
  Sender: FDA-Public Use
  Company Number: US-GILEAD-2007-0013551

PATIENT
  Age: 64 Year
  Sex: Female
  Weight: 96.61 kg

DRUGS (27)
  1. LETAIRIS [Suspect]
     Indication: PULMONARY ARTERIAL HYPERTENSION
     Route: 048
     Dates: start: 200710
  2. LETAIRIS [Suspect]
     Route: 048
     Dates: start: 20070817, end: 200710
  3. GLUCOPHAGE [Concomitant]
     Route: 048
  4. REVATIO [Concomitant]
     Route: 048
  5. CLARITIN-D [Concomitant]
     Route: 048
  6. OMEGA-3 [Concomitant]
     Route: 048
  7. CARDIZEM [Concomitant]
     Route: 048
  8. CARDIZEM [Concomitant]
     Route: 048
  9. PREVACID [Concomitant]
     Route: 048
  10. TRAMADOL [Concomitant]
     Route: 048
  11. COUMADIN [Concomitant]
     Route: 048
     Dates: start: 20051011
  12. SPIRONOLACTONE [Concomitant]
     Route: 048
     Dates: start: 20050812
  13. VITAMIN B12 [Concomitant]
     Route: 030
     Dates: start: 20050812
  14. ACTOS [Concomitant]
     Route: 048
  15. ALBUTEROL [Concomitant]
     Route: 055
  16. CALCIUM [Concomitant]
     Route: 048
  17. TORSEMIDE [Concomitant]
     Route: 048
  18. SINGULAIR [Concomitant]
     Route: 048
  19. LIPITOR [Concomitant]
     Route: 048
  20. MIRAPEX [Concomitant]
     Route: 048
  21. ADVAIR [Concomitant]
     Route: 055
  22. WELLBUTRIN [Concomitant]
     Route: 048
  23. FLONASE [Concomitant]
     Route: 045
  24. CLONAZEPAM [Concomitant]
     Route: 048
  25. CENTRUM [Concomitant]
     Route: 048
  26. MAGNESIUM [Concomitant]
     Route: 048
  27. OXYGEN [Concomitant]
     Route: 055

REACTIONS (2)
  - Oxygen saturation decreased [Recovered/Resolved]
  - Oedema peripheral [Recovered/Resolved]
